FAERS Safety Report 7314920-1 (Version None)
Quarter: 2011Q1

REPORT INFORMATION
  Report Type: 
  Country: None (occurrence: None)
  Receive Date: 20110225
  Receipt Date: 20100202
  Transmission Date: 20110831
  Serious: No
  Sender: FDA-Public Use
  Company Number: US-MYLANLABS-2010S1001837

PATIENT
  Age: 32 Year
  Sex: Male
  Weight: 86.18 kg

DRUGS (2)
  1. AMNESTEEM [Suspect]
     Indication: ACNE
     Route: 048
     Dates: start: 20091105, end: 20100101
  2. ALEVE [Concomitant]

REACTIONS (4)
  - DRY SKIN [None]
  - BLOOD TRIGLYCERIDES INCREASED [None]
  - LIP DRY [None]
  - BLOOD CHOLESTEROL INCREASED [None]
